FAERS Safety Report 12632172 (Version 2)
Quarter: 2016Q3

REPORT INFORMATION
  Report Type: Spontaneous
  Country: US (occurrence: US)
  Receive Date: 20160808
  Receipt Date: 20160808
  Transmission Date: 20161109
  Serious: No
  Sender: FDA-Public Use
  Company Number: US-BEH-2016062071

PATIENT
  Sex: Female
  Weight: 92 kg

DRUGS (19)
  1. ESTRACE [Concomitant]
     Active Substance: ESTRADIOL
  2. IMITREX [Concomitant]
     Active Substance: SUMATRIPTAN SUCCINATE
  3. ADVAIR HFA [Concomitant]
     Active Substance: FLUTICASONE PROPIONATE\SALMETEROL XINAFOATE
  4. KEFLEX [Concomitant]
     Active Substance: CEPHALEXIN
  5. RANITIDINE. [Concomitant]
     Active Substance: RANITIDINE
  6. FLAGYL [Concomitant]
     Active Substance: METRONIDAZOLE\METRONIDAZOLE HYDROCHLORIDE
  7. PROAIR HFA [Concomitant]
     Active Substance: ALBUTEROL SULFATE
  8. AMBIEN [Concomitant]
     Active Substance: ZOLPIDEM TARTRATE
  9. VITAMIN D [Concomitant]
     Active Substance: CHOLECALCIFEROL
  10. COMPLETE MULTIVITAMIN [Concomitant]
     Active Substance: VITAMINS
  11. METHENAMINE [Concomitant]
     Active Substance: METHENAMINE
  12. SINGULAIR [Concomitant]
     Active Substance: MONTELUKAST SODIUM
  13. HIZENTRA [Suspect]
     Active Substance: HUMAN IMMUNOGLOBULIN G
     Indication: IMMUNODEFICIENCY COMMON VARIABLE
     Route: 058
     Dates: start: 20131010
  14. ATENOLOL. [Concomitant]
     Active Substance: ATENOLOL
  15. BACTRIM [Concomitant]
     Active Substance: SULFAMETHOXAZOLE\TRIMETHOPRIM
  16. EPIPEN [Concomitant]
     Active Substance: EPINEPHRINE
  17. TRIAMTERENE. [Concomitant]
     Active Substance: TRIAMTERENE
  18. LORAZEPAM. [Concomitant]
     Active Substance: LORAZEPAM
  19. ASPIRIN. [Concomitant]
     Active Substance: ASPIRIN

REACTIONS (1)
  - Urinary tract infection [Unknown]
